FAERS Safety Report 10758290 (Version 1)
Quarter: 2015Q1

REPORT INFORMATION
  Report Type: Spontaneous
  Country: DE (occurrence: DE)
  Receive Date: 20150203
  Receipt Date: 20150203
  Transmission Date: 20150721
  Serious: Yes (Other)
  Sender: FDA-Public Use
  Company Number: DE-009507513-1501DEU012200

PATIENT
  Sex: Female
  Weight: 75 kg

DRUGS (4)
  1. SIMVASTATIN. [Suspect]
     Active Substance: SIMVASTATIN
     Indication: TYPE IIA HYPERLIPIDAEMIA
     Dosage: 20 MG, 1 DAY
     Route: 048
     Dates: start: 200908, end: 200911
  2. EZETROL [Suspect]
     Active Substance: EZETIMIBE
     Indication: TYPE IIA HYPERLIPIDAEMIA
     Dosage: 10 MG, 1 DAY
     Route: 048
     Dates: start: 201205, end: 201207
  3. PRAVASTATIN SODIUM. [Suspect]
     Active Substance: PRAVASTATIN SODIUM
     Indication: TYPE IIA HYPERLIPIDAEMIA
     Dosage: 40 MG, 1 DAY
     Route: 048
     Dates: start: 201408, end: 201409
  4. ATORVASTATIN [Suspect]
     Active Substance: ATORVASTATIN
     Indication: TYPE IIA HYPERLIPIDAEMIA
     Dosage: 20 MG, 1 DAY
     Route: 048
     Dates: start: 201407, end: 201408

REACTIONS (4)
  - Fatigue [Recovered/Resolved]
  - Depression [Recovered/Resolved]
  - Apathy [Recovered/Resolved]
  - Myalgia [Recovered/Resolved]
